FAERS Safety Report 12631175 (Version 2)
Quarter: 2016Q3

REPORT INFORMATION
  Report Type: Spontaneous
  Country: US (occurrence: US)
  Receive Date: 20160808
  Receipt Date: 20160808
  Transmission Date: 20161109
  Serious: No
  Sender: FDA-Public Use
  Company Number: US-BEH-2015052586

PATIENT
  Sex: Female
  Weight: 87 kg

DRUGS (24)
  1. LIDOCAINE. [Concomitant]
     Active Substance: LIDOCAINE
  2. ZOLOFT [Concomitant]
     Active Substance: SERTRALINE HYDROCHLORIDE
  3. OMEPRAZOLE. [Concomitant]
     Active Substance: OMEPRAZOLE
  4. MULTIVITAMIN [Concomitant]
     Active Substance: VITAMINS
  5. OXYCODONE [Concomitant]
     Active Substance: OXYCODONE
  6. FLUTICASONE [Concomitant]
     Active Substance: FLUTICASONE\FLUTICASONE PROPIONATE
  7. CVS PROBIOTIC CAPSULE [Concomitant]
  8. FUROSEMIDE. [Concomitant]
     Active Substance: FUROSEMIDE
  9. ZYRTEC [Concomitant]
     Active Substance: CETIRIZINE HYDROCHLORIDE
  10. DIPHENHYDRAMINE. [Concomitant]
     Active Substance: DIPHENHYDRAMINE
  11. PREDNISONE. [Concomitant]
     Active Substance: PREDNISONE
  12. ZADITOR [Concomitant]
     Active Substance: KETOTIFEN FUMARATE
  13. TRAMADOL. [Concomitant]
     Active Substance: TRAMADOL
  14. DILTIAZEM. [Concomitant]
     Active Substance: DILTIAZEM
  15. KLOR-CON [Concomitant]
     Active Substance: POTASSIUM CHLORIDE
  16. CHOLESTYRAMINE. [Concomitant]
     Active Substance: CHOLESTYRAMINE
  17. HIZENTRA [Suspect]
     Active Substance: HUMAN IMMUNOGLOBULIN G
     Indication: IMMUNODEFICIENCY COMMON VARIABLE
     Route: 058
  18. ACETAMINOPHEN. [Concomitant]
     Active Substance: ACETAMINOPHEN
  19. CARVEDILOL. [Concomitant]
     Active Substance: CARVEDILOL
  20. NITROFURANTOIN. [Concomitant]
     Active Substance: NITROFURANTOIN
  21. ALPRAZOLAM. [Concomitant]
     Active Substance: ALPRAZOLAM
  22. ESTRADIOL. [Concomitant]
     Active Substance: ESTRADIOL
  23. EPIPEN AUTO INJECTOR [Concomitant]
     Indication: ANAPHYLACTIC REACTION
  24. PHENAZOPYRIDINE. [Concomitant]
     Active Substance: PHENAZOPYRIDINE

REACTIONS (1)
  - Infusion site pain [Unknown]
